FAERS Safety Report 21848455 (Version 2)
Quarter: 2023Q2

REPORT INFORMATION
  Report Type: Spontaneous
  Country: US (occurrence: US)
  Receive Date: 20230111
  Receipt Date: 20230405
  Transmission Date: 20230721
  Serious: No
  Sender: FDA-Public Use
  Company Number: US-CHEMOCENTRYX, INC.-2022USCCXI0432

PATIENT

DRUGS (7)
  1. TAVNEOS [Suspect]
     Active Substance: AVACOPAN
     Indication: Granulomatosis with polyangiitis
     Dosage: 30 MG, 2X/DAY
     Route: 048
     Dates: start: 202209
  2. TAVNEOS [Suspect]
     Active Substance: AVACOPAN
     Indication: Granulomatosis with polyangiitis
  3. TAVNEOS [Suspect]
     Active Substance: AVACOPAN
     Indication: Renal disorder
  4. PREDNISONE [Suspect]
     Active Substance: PREDNISONE
     Indication: Autoimmune disorder
     Dosage: 80 MG
     Route: 048
     Dates: start: 202208, end: 2022
  5. PREDNISONE [Suspect]
     Active Substance: PREDNISONE
     Indication: Renal disorder
     Dosage: TAPERING
     Route: 065
     Dates: start: 2022, end: 2022
  6. PREDNISONE [Suspect]
     Active Substance: PREDNISONE
     Indication: Autoimmune disorder
     Dosage: 15 MG, 1X/DAY
     Route: 048
     Dates: start: 2022
  7. PREDNISONE [Suspect]
     Active Substance: PREDNISONE
     Indication: Renal disorder

REACTIONS (5)
  - Haematuria [Unknown]
  - Proteinuria [Unknown]
  - Blood urea nitrogen/creatinine ratio increased [Unknown]
  - Bacteriuria [Unknown]
  - Product use issue [Unknown]

NARRATIVE: CASE EVENT DATE: 20221014
